FAERS Safety Report 17620462 (Version 1)
Quarter: 2020Q2

REPORT INFORMATION
  Report Type: Spontaneous
  Country: IT (occurrence: IT)
  Receive Date: 20200403
  Receipt Date: 20200403
  Transmission Date: 20200713
  Serious: Yes (Hospitalization)
  Sender: FDA-Public Use
  Company Number: IT-SUN PHARMACEUTICAL INDUSTRIES LTD-2020RR-242741

PATIENT
  Age: 62 Year
  Sex: Female
  Weight: 54 kg

DRUGS (1)
  1. OXALIPLATINO SUN [Suspect]
     Active Substance: OXALIPLATIN
     Indication: GASTRIC CANCER STAGE IV
     Dosage: 85 MILLIGRAM/SQ. METER, CYCLICAL
     Route: 042
     Dates: start: 20190508, end: 20191205

REACTIONS (6)
  - Asthenia [Recovered/Resolved]
  - Idiosyncratic drug reaction [Recovered/Resolved]
  - Presyncope [Recovered/Resolved]
  - Oxygen saturation decreased [Recovered/Resolved]
  - Erythema [Recovered/Resolved]
  - Hypersensitivity [Recovered/Resolved]

NARRATIVE: CASE EVENT DATE: 20191205
